FAERS Safety Report 7432372-8 (Version None)
Quarter: 2011Q2

REPORT INFORMATION
  Report Type: 
  Country: None (occurrence: None)
  Receive Date: 20110422
  Receipt Date: 20110419
  Transmission Date: 20111010
  Serious: Yes (Hospitalization, Other)
  Sender: FDA-Public Use
  Company Number: US-PFIZER INC-US-WYE-H12317209

PATIENT
  Sex: Female
  Weight: 60.9 kg

DRUGS (23)
  1. BLINDED BAZEDOXIFENE ACETATE, CONJUGATED ESTROGENS [Suspect]
     Indication: OSTEOPOROSIS
  2. LOVAZA [Concomitant]
     Indication: ROUTINE HEALTH MAINTENANCE
     Dosage: UNK
     Route: 048
     Dates: start: 20050101
  3. BLINDED NO SUBJECT DRUG [Suspect]
     Indication: ENDOMETRIAL HYPERPLASIA
     Dosage: 1.0 DF, 1X/DAY
     Route: 048
     Dates: start: 20090820
  4. BLINDED PLACEBO [Suspect]
     Indication: ENDOMETRIAL HYPERPLASIA
     Dosage: 1.0 DF, 1X/DAY
     Route: 048
     Dates: start: 20090820
  5. BLINDED ESTROGENS CONJUGATED, MEDROXYPROGESTERONE ACETATE [Suspect]
     Indication: OSTEOPOROSIS
  6. BLINDED ESTROGENS CONJUGATED, MEDROXYPROGESTERONE ACETATE [Suspect]
     Indication: PROPHYLAXIS
  7. MEDROL [Suspect]
     Indication: DERMATITIS CONTACT
     Dosage: UNK
     Dates: start: 20090919, end: 20091005
  8. BLINDED BAZEDOXIFENE ACETATE [Suspect]
     Indication: PROPHYLAXIS
  9. DIPHENHYDRAMINE [Suspect]
     Indication: DERMATITIS CONTACT
     Dosage: UNK
     Dates: start: 20090918, end: 20090923
  10. ACETYLSALICYLIC ACID [Concomitant]
  11. LEXAPRO [Concomitant]
     Indication: DEPRESSION
     Dosage: 10 MG, 1X/DAY
     Route: 048
     Dates: start: 20080701
  12. BLINDED ESTROGENS CONJUGATED, MEDROXYPROGESTERONE ACETATE [Suspect]
     Indication: ENDOMETRIAL HYPERPLASIA
     Dosage: 1.0 DF, 1X/DAY
     Route: 048
     Dates: start: 20090820
  13. BLINDED NO SUBJECT DRUG [Suspect]
     Indication: OSTEOPOROSIS
  14. BLINDED NO SUBJECT DRUG [Suspect]
     Indication: PROPHYLAXIS
  15. BLINDED BAZEDOXIFENE ACETATE [Suspect]
     Indication: OSTEOPOROSIS
  16. BLINDED BAZEDOXIFENE ACETATE, CONJUGATED ESTROGENS [Suspect]
     Indication: PROPHYLAXIS
  17. CALTRATE + D [Concomitant]
     Indication: ROUTINE HEALTH MAINTENANCE
     Dosage: UNK
     Route: 048
     Dates: start: 20090820
  18. MULTIPLE VITAMINS [Concomitant]
     Dosage: UNK
     Route: 048
     Dates: start: 20050205
  19. BLINDED BAZEDOXIFENE ACETATE [Suspect]
     Indication: ENDOMETRIAL HYPERPLASIA
     Dosage: 1.0 DF, 1X/DAY
     Route: 048
     Dates: start: 20090820
  20. BLINDED BAZEDOXIFENE ACETATE, CONJUGATED ESTROGENS [Suspect]
     Indication: ENDOMETRIAL HYPERPLASIA
     Dosage: 1.0 DF, 1X/DAY
     Route: 048
     Dates: start: 20090820
  21. BLINDED PLACEBO [Suspect]
     Indication: PROPHYLAXIS
  22. BLINDED PLACEBO [Suspect]
     Indication: OSTEOPOROSIS
  23. ACTONEL [Concomitant]
     Indication: OSTEOPOROSIS
     Dosage: 35 MG, WEEKLY
     Route: 048
     Dates: start: 20060201

REACTIONS (2)
  - DEHYDRATION [None]
  - BASAL CELL CARCINOMA [None]
